FAERS Safety Report 19474865 (Version 1)
Quarter: 2021Q2

REPORT INFORMATION
  Report Type: Report from Study
  Country: DE (occurrence: DE)
  Receive Date: 20210629
  Receipt Date: 20210629
  Transmission Date: 20210717
  Serious: Yes (Other)
  Sender: FDA-Public Use
  Company Number: DE-BIOGEN-2021BI01022966

PATIENT
  Age: 0 Day
  Sex: Female

DRUGS (2)
  1. PLEGRIDY [Suspect]
     Active Substance: PEGINTERFERON BETA-1A
     Indication: MATERNAL EXPOSURE TIMING UNSPECIFIED
     Route: 064
     Dates: start: 20150528, end: 20150709
  2. FOLIC ACID. [Concomitant]
     Active Substance: FOLIC ACID
     Indication: MATERNAL EXPOSURE TIMING UNSPECIFIED
     Route: 064

REACTIONS (7)
  - Foetal exposure during pregnancy [Recovered/Resolved]
  - Respiratory tract infection [Recovered/Resolved]
  - Motor dysfunction [Recovered/Resolved]
  - Sacroiliac joint dysfunction [Unknown]
  - Foot deformity [Not Recovered/Not Resolved]
  - Muscular weakness [Recovered/Resolved]
  - Developmental hip dysplasia [Unknown]

NARRATIVE: CASE EVENT DATE: 20160312
